FAERS Safety Report 6214384-5 (Version None)
Quarter: 2009Q2

REPORT INFORMATION
  Report Type: 
  Country: None (occurrence: None)
  Receive Date: 20090602
  Receipt Date: 20090518
  Transmission Date: 20091009
  Serious: Yes (Death, Hospitalization)
  Sender: FDA-Public Use
  Company Number: 2009001515

PATIENT
  Age: 71 Year
  Sex: Male

DRUGS (2)
  1. ERLOTINB       (ERLOTINIB) [Suspect]
     Indication: NON-SMALL CELL LUNG CANCER
     Dosage: (150 MG),ORAL
     Route: 048
     Dates: start: 20090317, end: 20090509
  2. DOCETAXEL [Suspect]
     Indication: NON-SMALL CELL LUNG CANCER
     Dosage: (75 MG/M2),INTRAVENOUS
     Route: 042
     Dates: start: 20090408, end: 20090429

REACTIONS (3)
  - ANAEMIA [None]
  - NEUTROPENIA [None]
  - RESPIRATORY TRACT INFECTION [None]
